FAERS Safety Report 4770844-5 (Version None)
Quarter: 2005Q3

REPORT INFORMATION
  Report Type: 
  Country: None (occurrence: None)
  Receive Date: 20050915
  Receipt Date: 20050912
  Transmission Date: 20060218
  Serious: Yes (Other)
  Sender: FDA-Public Use
  Company Number: ES-GLAXOSMITHKLINE-B0393602A

PATIENT
  Age: 1 Day
  Sex: Male

DRUGS (1)
  1. FLUTICASONE/SALMETEROL [Suspect]
     Indication: ASTHMA
     Dates: start: 20040702, end: 20041027

REACTIONS (3)
  - ARRHYTHMIA NEONATAL [None]
  - DRUG EXPOSURE DURING PREGNANCY [None]
  - SUPRAVENTRICULAR EXTRASYSTOLES [None]
